FAERS Safety Report 17429570 (Version 4)
Quarter: 2020Q1

REPORT INFORMATION
  Report Type: Spontaneous
  Country: US (occurrence: US)
  Receive Date: 20200218
  Receipt Date: 20200327
  Transmission Date: 20200409
  Serious: No
  Sender: FDA-Public Use
  Company Number: US-JNJFOC-20200217426

PATIENT
  Age: 22 Year
  Sex: Female

DRUGS (1)
  1. TREMFYA [Suspect]
     Active Substance: GUSELKUMAB
     Indication: PSORIASIS
     Route: 058
     Dates: start: 202001

REACTIONS (7)
  - Therapeutic response decreased [Unknown]
  - Needle issue [Unknown]
  - Product dose omission [Unknown]
  - Psoriasis [Unknown]
  - Accidental exposure to product [Unknown]
  - Product use issue [Unknown]
  - Off label use [Unknown]

NARRATIVE: CASE EVENT DATE: 202001
